FAERS Safety Report 25174848 (Version 2)
Quarter: 2025Q2

REPORT INFORMATION
  Report Type: Spontaneous
  Country: CH (occurrence: CH)
  Receive Date: 20250408
  Receipt Date: 20250422
  Transmission Date: 20250717
  Serious: Yes (Death, Hospitalization, Other)
  Sender: PFIZER
  Company Number: CH-GlaxoSmithKline-B0308330A

PATIENT
  Age: 43 Year
  Sex: Male

DRUGS (5)
  1. CYTARABINE [Suspect]
     Active Substance: CYTARABINE
     Indication: Lymphocytic leukaemia
     Route: 042
     Dates: start: 20030225, end: 20030316
  2. PURINETHOL [Suspect]
     Active Substance: MERCAPTOPURINE
     Indication: Lymphocytic leukaemia
     Dosage: 100 MG, 1X/DAY
     Route: 048
     Dates: start: 200303, end: 200303
  3. PURINETHOL [Suspect]
     Active Substance: MERCAPTOPURINE
     Route: 048
     Dates: start: 200303
  4. CYCLOPHOSPHAMIDE [Suspect]
     Active Substance: CYCLOPHOSPHAMIDE
     Indication: Lymphocytic leukaemia
     Route: 042
     Dates: start: 20030115, end: 20030311
  5. MESNA [Concomitant]
     Active Substance: MESNA
     Indication: Lymphocytic leukaemia
     Route: 065
     Dates: start: 200303, end: 200303

REACTIONS (9)
  - Pancytopenia [Fatal]
  - Complications of transplant surgery [Fatal]
  - Graft versus host disease [Fatal]
  - Toxic epidermal necrolysis [Fatal]
  - Acute respiratory distress syndrome [Fatal]
  - Acute kidney injury [Fatal]
  - Ileus [Fatal]
  - Dyspnoea [Fatal]
  - Depressed level of consciousness [Fatal]

NARRATIVE: CASE EVENT DATE: 20030331
